FAERS Safety Report 19855010 (Version 1)
Quarter: 2021Q3

REPORT INFORMATION
  Report Type: Spontaneous
  Country: ID (occurrence: ID)
  Receive Date: 20210920
  Receipt Date: 20210920
  Transmission Date: 20211014
  Serious: Yes (Death, Other)
  Sender: FDA-Public Use
  Company Number: ID-ASTELLAS-2021US028737

PATIENT
  Age: 75 Year
  Sex: Male

DRUGS (1)
  1. XTANDI [Suspect]
     Active Substance: ENZALUTAMIDE
     Indication: PRODUCT USED FOR UNKNOWN INDICATION
     Route: 048

REACTIONS (8)
  - Cardiac disorder [Unknown]
  - Nausea [Unknown]
  - Prostatic specific antigen increased [Unknown]
  - Fluid retention [Unknown]
  - Peripheral swelling [Unknown]
  - Death [Fatal]
  - Vomiting [Unknown]
  - Drug resistance [Unknown]

NARRATIVE: CASE EVENT DATE: 20210727
